FAERS Safety Report 8295293-7 (Version None)
Quarter: 2012Q2

REPORT INFORMATION
  Report Type: 
  Country: None (occurrence: None)
  Receive Date: 20120416
  Receipt Date: 20120406
  Transmission Date: 20120825
  Serious: Yes (Hospitalization)
  Sender: FDA-Public Use
  Company Number: DKLU1077594

PATIENT
  Age: 43 Year
  Sex: Male

DRUGS (3)
  1. SABRIL [Suspect]
     Indication: TEMPORAL LOBE EPILEPSY
     Dosage: 1500 MG MILLIGRAM(S), 2 IN 1 D, ORAL
     Route: 048
     Dates: start: 20111101
  2. LORAZEPAM [Concomitant]
  3. RISPERDAL [Concomitant]

REACTIONS (2)
  - ABNORMAL BEHAVIOUR [None]
  - AGGRESSION [None]
